FAERS Safety Report 15707122 (Version 8)
Quarter: 2019Q1

REPORT INFORMATION
  Report Type: Report from Study
  Country: KR (occurrence: KR)
  Receive Date: 20181210
  Receipt Date: 20190314
  Transmission Date: 20190417
  Serious: Yes (Hospitalization)
  Sender: FDA-Public Use
  Company Number: KR-AMGEN-KORNI2018174203

PATIENT
  Age: 58 Year
  Sex: Male
  Weight: 77 kg

DRUGS (12)
  1. CYTOTEC [Concomitant]
     Active Substance: MISOPROSTOL
     Dosage: 200 MICROGRAM
     Dates: start: 20181119
  2. MAGNESIUM OXIDE. [Concomitant]
     Active Substance: MAGNESIUM OXIDE
     Dosage: 500 MILLIGRAM
     Dates: start: 20181002, end: 20181030
  3. DEXAMETHASONE. [Suspect]
     Active Substance: DEXAMETHASONE
     Indication: PLASMA CELL MYELOMA
     Dosage: 20 MILLIGRAM
     Route: 065
     Dates: start: 20181119
  4. ASPIRIN. [Concomitant]
     Active Substance: ASPIRIN
     Dosage: 100 MILLIGRAM
     Dates: start: 20180320
  5. FUNGIZONE [Concomitant]
     Active Substance: AMPHOTERICIN B
     Dosage: 40 MILLIGRAM
     Dates: start: 20181002, end: 20181021
  6. SEPTRIN [Suspect]
     Active Substance: SULFAMETHOXAZOLE\TRIMETHOPRIM
     Indication: PRODUCT USED FOR UNKNOWN INDICATION
     Dosage: 5 UNK, UNK
     Route: 065
     Dates: start: 20181021, end: 20181207
  7. CARFILZOMIB [Suspect]
     Active Substance: CARFILZOMIB
     Indication: PLASMA CELL MYELOMA
     Dosage: 20 MILLIGRAM/SQ. METER
     Route: 042
     Dates: start: 20181119
  8. LEVOFLOXACIN HEMIHYDRATE [Concomitant]
     Active Substance: LEVOFLOXACIN
     Dosage: 750 MILLIGRAM
     Dates: start: 20181024, end: 20181025
  9. COTRIM [Concomitant]
     Active Substance: SULFAMETHOXAZOLE\TRIMETHOPRIM
     Dosage: 25 MILLILITER
     Dates: start: 20181013, end: 20181019
  10. K-CONTIN [Concomitant]
     Dosage: 1200 MILLIGRAM
     Dates: start: 20181005, end: 20181024
  11. LEVOFLOXACIN. [Concomitant]
     Active Substance: LEVOFLOXACIN
     Dosage: 750 MILLIGRAM
     Dates: start: 20181003, end: 20181023
  12. LENALIDOMIDE [Suspect]
     Active Substance: LENALIDOMIDE
     Indication: PLASMA CELL MYELOMA
     Dosage: 350 MILLIGRAM
     Route: 065
     Dates: start: 20181119

REACTIONS (7)
  - Necrotising retinitis [Unknown]
  - Stevens-Johnson syndrome [Not Recovered/Not Resolved]
  - Alanine aminotransferase increased [Unknown]
  - Rash [Unknown]
  - Aspartate aminotransferase increased [Unknown]
  - Mouth ulceration [Unknown]
  - Anaemia [Unknown]

NARRATIVE: CASE EVENT DATE: 20181203
